FAERS Safety Report 5600298-8 (Version None)
Quarter: 2007Q4

REPORT INFORMATION
  Report Type: 
  Country: None (occurrence: None)
  Receive Date: 20071226
  Receipt Date: 20061215
  Transmission Date: 20080405
  Serious: Yes (Other)
  Sender: FDA-Public Use
  Company Number: 233137

PATIENT
  Age: 68 Year
  Sex: Male
  Weight: 88.6 kg

DRUGS (11)
  1. RAPTIVA [Suspect]
     Indication: PSORIASIS
     Dosage: 0.9 ML, 1/WEEK, 1.3 ML, 1/WEEK, SUBCUTANEOUS
     Route: 058
     Dates: start: 20061023, end: 20061201
  2. RAPTIVA [Suspect]
     Indication: PSORIASIS
     Dosage: 0.9 ML, 1/WEEK, 1.3 ML, 1/WEEK, SUBCUTANEOUS
     Route: 058
     Dates: start: 20061202
  3. COUMADIN [Concomitant]
  4. CLOBEX [Concomitant]
  5. HYDROCORTISONE CREAM (HYDROCORTISONE) [Concomitant]
  6. HYDROCHLOROTHIAZIDE [Concomitant]
  7. MEDICATION (GENERIC COMPONENT(S) [Concomitant]
  8. METOROLAC (GENERIC COMPONENTS) [Concomitant]
  9. FISH OIL (FISH OIL) [Concomitant]
  10. LISINOPRIL [Concomitant]
  11. METOPROLOL TARTRATE [Concomitant]

REACTIONS (2)
  - INFLUENZA LIKE ILLNESS [None]
  - PSORIASIS [None]
